FAERS Safety Report 12915020 (Version 1)
Quarter: 2016Q4

REPORT INFORMATION
  Report Type: Spontaneous
  Country: US (occurrence: US)
  Receive Date: 20161106
  Receipt Date: 20161106
  Transmission Date: 20170207
  Serious: No
  Sender: FDA-Public Use
  Company Number: US-RELYPSA-RLY2016002297

PATIENT
  Sex: Female

DRUGS (11)
  1. LORAZEPAM. [Concomitant]
     Active Substance: LORAZEPAM
  2. VITAMIN B12 [Concomitant]
     Active Substance: CYANOCOBALAMIN
  3. CLONIDINE HCL [Concomitant]
     Active Substance: CLONIDINE HYDROCHLORIDE
  4. VITAMIN D3 [Concomitant]
     Active Substance: CHOLECALCIFEROL
  5. LABETALOL HCL [Concomitant]
     Active Substance: LABETALOL HYDROCHLORIDE
  6. FOLIC ACID. [Concomitant]
     Active Substance: FOLIC ACID
  7. PRESERVISION AREDS [Concomitant]
     Active Substance: MINERALS\VITAMINS
  8. ARANESP [Concomitant]
     Active Substance: DARBEPOETIN ALFA
  9. VELTASSA [Suspect]
     Active Substance: PATIROMER
     Indication: HYPERKALAEMIA
     Dosage: 8.4 G, QD
     Route: 048
  10. VELTASSA [Suspect]
     Active Substance: PATIROMER
     Dosage: 8.4 G, TWICE WEEKLY
     Route: 048
  11. IRON [Concomitant]
     Active Substance: IRON

REACTIONS (5)
  - Constipation [Not Recovered/Not Resolved]
  - Abdominal distension [Not Recovered/Not Resolved]
  - Flatulence [Not Recovered/Not Resolved]
  - Abdominal pain upper [Not Recovered/Not Resolved]
  - Inappropriate schedule of drug administration [Unknown]
